FAERS Safety Report 7157128-5 (Version None)
Quarter: 2010Q4

REPORT INFORMATION
  Report Type: 
  Country: None (occurrence: None)
  Receive Date: 20101214
  Receipt Date: 20100104
  Transmission Date: 20110411
  Serious: No
  Sender: FDA-Public Use
  Company Number: US-ASTRAZENECA-2010SE00390

PATIENT
  Sex: Female
  Weight: 65.8 kg

DRUGS (2)
  1. CRESTOR [Suspect]
     Indication: HYPERCHOLESTEROLAEMIA
     Route: 048
     Dates: start: 20090601
  2. BYSTOLIC [Concomitant]

REACTIONS (2)
  - BALANCE DISORDER [None]
  - WEIGHT INCREASED [None]
